FAERS Safety Report 18208828 (Version 1)
Quarter: 2020Q3

REPORT INFORMATION
  Report Type: Spontaneous
  Country: US (occurrence: US)
  Receive Date: 20200828
  Receipt Date: 20200828
  Transmission Date: 20201103
  Serious: Yes (Other)
  Sender: FDA-Public Use
  Company Number: US-ELI_LILLY_AND_COMPANY-US202008007818

PATIENT
  Sex: Male

DRUGS (8)
  1. HUMULIN N [Suspect]
     Active Substance: INSULIN HUMAN
     Dosage: UNK, EACH EVENING
     Route: 058
  2. INSULIN LISPRO LILLY (MIRIOPEN) (KWIKPEN) [Suspect]
     Active Substance: INSULIN LISPRO
     Dosage: 16 U, EACH MORNING
     Route: 058
  3. INSULIN LISPRO LILLY (MIRIOPEN) (KWIKPEN) [Suspect]
     Active Substance: INSULIN LISPRO
     Dosage: 6?10 U, DAILY (AT LUNCH)
     Route: 058
     Dates: start: 2010
  4. INSULIN LISPRO LILLY (MIRIOPEN) (KWIKPEN) [Suspect]
     Active Substance: INSULIN LISPRO
     Indication: TYPE 2 DIABETES MELLITUS
     Dosage: 16 U, EACH MORNING
     Route: 058
     Dates: start: 2010
  5. INSULIN LISPRO LILLY (MIRIOPEN) (KWIKPEN) [Suspect]
     Active Substance: INSULIN LISPRO
     Dosage: 6?10 U, DAILY (AT LUNCH)
     Route: 058
     Dates: start: 2010
  6. INSULIN LISPRO LILLY (MIRIOPEN) (KWIKPEN) [Suspect]
     Active Substance: INSULIN LISPRO
     Dosage: 18?20 U, DAILY (AT SUPPER)
     Route: 058
     Dates: start: 2010
  7. HUMULIN N [Suspect]
     Active Substance: INSULIN HUMAN
     Indication: TYPE 2 DIABETES MELLITUS
     Dosage: UNK, EACH EVENING
     Route: 058
     Dates: start: 2010
  8. INSULIN LISPRO LILLY (MIRIOPEN) (KWIKPEN) [Suspect]
     Active Substance: INSULIN LISPRO
     Dosage: 18?20 U, DAILY (AT SUPPER)
     Route: 058
     Dates: start: 2010

REACTIONS (4)
  - Incorrect dose administered [Unknown]
  - Dementia [Unknown]
  - Injection site pain [Unknown]
  - Blood glucose increased [Unknown]

NARRATIVE: CASE EVENT DATE: 2017
